FAERS Safety Report 6342888-3 (Version None)
Quarter: 2009Q3

REPORT INFORMATION
  Report Type: 
  Country: None (occurrence: None)
  Receive Date: 20090908
  Receipt Date: 20090831
  Transmission Date: 20100115
  Serious: Yes (Hospitalization)
  Sender: FDA-Public Use
  Company Number: FR-BRISTOL-MYERS SQUIBB COMPANY-14763064

PATIENT
  Age: 28 Year
  Sex: Male

DRUGS (1)
  1. HYDREA [Suspect]
     Indication: SICKLE CELL ANAEMIA
     Dosage: TAKEN FOR 2MONTHS
     Dates: start: 20090301

REACTIONS (3)
  - ABDOMINAL PAIN [None]
  - SICKLE CELL ANAEMIA WITH CRISIS [None]
  - VOMITING [None]
